APPROVED DRUG PRODUCT: HYDROXYPROGESTERONE CAPROATE
Active Ingredient: HYDROXYPROGESTERONE CAPROATE
Strength: 125MG/ML
Dosage Form/Route: INJECTABLE;INJECTION
Application: N017439 | Product #001
Applicant: ALLERGAN SALES LLC
Approved: Approved Prior to Jan 1, 1982 | RLD: No | RS: No | Type: DISCN